FAERS Safety Report 8890365 (Version 1)
Quarter: 2012Q4

REPORT INFORMATION
  Report Type: Report from Study
  Country: US (occurrence: US)
  Receive Date: 20121106
  Receipt Date: 20121106
  Transmission Date: 20130627
  Serious: Yes (Hospitalization)
  Sender: FDA-Public Use
  Company Number: US-009507513-1211USA001236

PATIENT
  Age: 60 Year
  Sex: Male
  Weight: 97.8 kg

DRUGS (12)
  1. DEXAMETHASONE [Suspect]
     Indication: MULTIPLE MYELOMA
     Dosage: 20 mg, days8,11,15,18 every 3 weeks
     Route: 048
     Dates: start: 20100426, end: 20110225
  2. BORTEZOMIB [Suspect]
     Indication: MULTIPLE MYELOMA
     Dosage: 2.1 mg, days8,11,15,18 every 3 weeks
     Route: 042
     Dates: start: 20100426, end: 20110225
  3. ACYCLOVIR [Concomitant]
     Indication: PROPHYLAXIS
     Dosage: 800 mg, bid
     Route: 048
  4. PHENYTOIN [Concomitant]
     Indication: CONVULSION
     Dosage: 100 mg, tid
     Route: 048
     Dates: start: 20100817
  5. ZOMETA [Concomitant]
     Indication: BONE DISORDER
     Dosage: UNK
     Route: 042
  6. METFORMIN [Concomitant]
     Indication: DIABETES MELLITUS
     Dosage: 500 mg, bid
     Route: 048
     Dates: start: 20080301
  7. LASIX (FUROSEMIDE) [Concomitant]
     Indication: OEDEMA
     Dosage: 20 mg, qd
     Route: 048
     Dates: start: 20100928
  8. COD LIVER OIL [Concomitant]
     Indication: SUPPLEMENTATION THERAPY
     Route: 048
  9. OXYCODONE [Concomitant]
     Dosage: 5 mg, prn
     Route: 048
     Dates: start: 20080304
  10. INSULIN [Concomitant]
     Indication: DIABETES MELLITUS
  11. VITAMINS (UNSPECIFIED) [Concomitant]
     Dosage: UNK, qd
     Dates: start: 20080805
  12. POTASSIUM (UNSPECIFIED) [Concomitant]

REACTIONS (1)
  - Deep vein thrombosis [Recovered/Resolved]
